FAERS Safety Report 8033196-3 (Version None)
Quarter: 2012Q1

REPORT INFORMATION
  Report Type: 
  Country: None (occurrence: None)
  Receive Date: 20120110
  Receipt Date: 20111229
  Transmission Date: 20120608
  Serious: Yes (Hospitalization)
  Sender: FDA-Public Use
  Company Number: FR-PFIZER INC-2011230856

PATIENT
  Age: 87 Year
  Sex: Male

DRUGS (13)
  1. HEPARIN SODIUM [Suspect]
     Indication: PROPHYLAXIS
     Dosage: 1000 IU, SINGLE
     Route: 042
     Dates: start: 20110125, end: 20110125
  2. NITROGLYCERIN [Concomitant]
     Dosage: 50, AS NEEDED
  3. TENORMIN [Concomitant]
     Dosage: UNK
  4. DIGOXIN [Concomitant]
  5. PANTOPRAZOLE [Suspect]
     Indication: PROPHYLAXIS
     Dosage: 20 MG, DAILY
     Route: 013
     Dates: start: 20110124, end: 20110206
  6. PLAVIX [Suspect]
     Indication: PROPHYLAXIS
     Dosage: 4 DF, 1X/DAY
     Route: 048
     Dates: start: 20110125, end: 20110125
  7. CORVASAL [Concomitant]
     Dosage: 2 MG, UNK
  8. PREVISCAN [Concomitant]
  9. ENDOTELON [Concomitant]
     Dosage: 150
  10. ASPIRIN [Suspect]
     Indication: ARTERIOSCLEROSIS CORONARY ARTERY
     Dosage: 1 DF, UNK
     Route: 048
     Dates: start: 20110124
  11. IMERON [Suspect]
     Indication: ARTERIOGRAM CORONARY
     Dosage: 150 ML, 1X/DAY
     Route: 042
     Dates: start: 20110125, end: 20110125
  12. SPIRONOLACTONE [Concomitant]
     Dosage: 50
  13. PROSCAR [Concomitant]

REACTIONS (1)
  - FIXED ERUPTION [None]
